FAERS Safety Report 8832368 (Version 3)
Quarter: 2013Q2

REPORT INFORMATION
  Report Type: Report from Study
  Country: IT (occurrence: IT)
  Receive Date: 20121009
  Receipt Date: 20130614
  Transmission Date: 20140414
  Serious: Yes (Death, Hospitalization)
  Sender: FDA-Public Use
  Company Number: IT-BAXTER-2012BAX019118

PATIENT
  Age: 76 Year
  Sex: Female
  Weight: 61 kg

DRUGS (8)
  1. ENDOXAN BAXTER [Suspect]
     Indication: DIFFUSE LARGE B-CELL LYMPHOMA
     Route: 042
     Dates: start: 20120720
  2. ENDOXAN BAXTER [Suspect]
     Route: 042
     Dates: start: 20120907
  3. DOXORUBICIN [Suspect]
     Indication: DIFFUSE LARGE B-CELL LYMPHOMA
     Route: 042
     Dates: start: 20120720
  4. DOXORUBICIN [Suspect]
     Route: 042
     Dates: start: 20120907
  5. VINCRISTINE [Suspect]
     Indication: DIFFUSE LARGE B-CELL LYMPHOMA
     Route: 042
     Dates: start: 20120720
  6. VINCRISTINE [Suspect]
     Route: 042
     Dates: start: 20120907
  7. PREDNISONE [Suspect]
     Indication: DIFFUSE LARGE B-CELL LYMPHOMA
     Route: 048
     Dates: start: 20120720
  8. PREDNISONE [Suspect]
     Route: 048
     Dates: start: 20120911

REACTIONS (1)
  - Pulmonary oedema [Fatal]
